FAERS Safety Report 21905248 (Version 1)
Quarter: 2023Q1

REPORT INFORMATION
  Report Type: Spontaneous
  Country: US (occurrence: None)
  Receive Date: 20230123
  Receipt Date: 20230123
  Transmission Date: 20230418
  Serious: Yes (unspecified)
  Sender: FDA-Public Use
  Company Number: None

PATIENT
  Age: 51 Year
  Sex: Female
  Weight: 126 kg

DRUGS (3)
  1. ANASTROZOLE [Suspect]
     Active Substance: ANASTROZOLE
     Indication: Breast cancer
     Dosage: OTHER QUANTITY : 1 TABLET(S);?FREQUENCY : DAILY;?
     Route: 048
     Dates: start: 20221209, end: 20230105
  2. Asthma inhaler (xopenex) [Concomitant]
  3. Vit D 2000 [Concomitant]

REACTIONS (5)
  - Hypertension [None]
  - Headache [None]
  - Tinnitus [None]
  - Cardiac flutter [None]
  - Chest pain [None]

NARRATIVE: CASE EVENT DATE: 20230104
